FAERS Safety Report 17913512 (Version 2)
Quarter: 2020Q3

REPORT INFORMATION
  Report Type: Spontaneous
  Country: US (occurrence: US)
  Receive Date: 20200618
  Receipt Date: 20200702
  Transmission Date: 20201103
  Serious: Yes (Life-Threatening, Hospitalization, Other)
  Sender: FDA-Public Use
  Company Number: US-BAXTER-2020BAX012441

PATIENT
  Age: 53 Year
  Sex: Male
  Weight: 186.5 kg

DRUGS (2)
  1. EXTRANEAL [Suspect]
     Active Substance: CALCIUM CHLORIDE\ICODEXTRIN\MAGNESIUM CHLORIDE\SODIUM CHLORIDE\SODIUM LACTATE
     Indication: PERITONEAL DIALYSIS
  2. EXTRANEAL [Suspect]
     Active Substance: CALCIUM CHLORIDE\ICODEXTRIN\MAGNESIUM CHLORIDE\SODIUM CHLORIDE\SODIUM LACTATE
     Indication: RENAL FAILURE
     Route: 033

REACTIONS (6)
  - Device connection issue [Unknown]
  - Fluid retention [Unknown]
  - Peritonitis bacterial [Recovered/Resolved]
  - Weight increased [Unknown]
  - Peritonitis [Unknown]
  - Product leakage [Unknown]

NARRATIVE: CASE EVENT DATE: 20200506
